FAERS Safety Report 10289171 (Version 1)
Quarter: 2014Q3

REPORT INFORMATION
  Report Type: Spontaneous
  Country: AR (occurrence: AR)
  Receive Date: 20140710
  Receipt Date: 20140710
  Transmission Date: 20150326
  Serious: Yes (Other)
  Sender: FDA-Public Use
  Company Number: AR-PFIZER INC-2014189382

PATIENT
  Age: 79 Year
  Sex: Female

DRUGS (3)
  1. IBUPIRAC [Suspect]
     Active Substance: IBUPROFEN
     Indication: PAIN
     Dosage: UNK
  2. RANITIDINE [Concomitant]
     Active Substance: RANITIDINE\RANITIDINE HYDROCHLORIDE
     Indication: PROPHYLAXIS
  3. ACDOL [Concomitant]
     Dosage: 1 G, 2X/DAY

REACTIONS (5)
  - Breast cancer [Unknown]
  - Amnesia [Unknown]
  - Hypertension [Unknown]
  - Drug ineffective [Unknown]
  - Osteoarthritis [Unknown]

NARRATIVE: CASE EVENT DATE: 2013
